FAERS Safety Report 9792943 (Version 3)
Quarter: 2014Q3

REPORT INFORMATION
  Report Type: Spontaneous
  Country: FR (occurrence: FR)
  Receive Date: 20140102
  Receipt Date: 20140806
  Transmission Date: 20150326
  Serious: Yes (Other)
  Sender: FDA-Public Use
  Company Number: FR-MERCK-1312FRA012002

PATIENT
  Sex: Female
  Weight: 95 kg

DRUGS (6)
  1. OVITRELLE [Concomitant]
     Active Substance: CHORIOGONADOTROPIN ALFA
     Dosage: UNK
     Dates: start: 201205
  2. MOPRAL (OMEPRAZOLE) [Concomitant]
     Active Substance: OMEPRAZOLE SODIUM
     Indication: NAUSEA
     Dosage: 1 DF, QD
     Dates: start: 20121017, end: 20121120
  3. SPASFON [Concomitant]
     Active Substance: PHLOROGLUCINOL
     Indication: PAIN
     Dosage: UNK
     Dates: start: 20121017, end: 20121120
  4. GONAL-F [Suspect]
     Active Substance: FOLLITROPIN
     Indication: INFERTILITY
     Dosage: 75 IU, UNK
     Route: 058
  5. CHOLECALCIFEROL [Concomitant]
     Active Substance: CHOLECALCIFEROL
  6. FOLLITROPIN BETA [Suspect]
     Active Substance: FOLLITROPIN
     Indication: INFERTILITY
     Dosage: 75 IU, UNK
     Route: 058
     Dates: end: 201203

REACTIONS (5)
  - Placental disorder [Not Recovered/Not Resolved]
  - Maternal exposure before pregnancy [Unknown]
  - Vomiting [Unknown]
  - Cerebrovascular accident [Unknown]
  - Palpitations [Unknown]

NARRATIVE: CASE EVENT DATE: 2012
